FAERS Safety Report 5612635-9 (Version None)
Quarter: 2008Q1

REPORT INFORMATION
  Report Type: 
  Country: None (occurrence: None)
  Receive Date: 20080204
  Receipt Date: 20080131
  Transmission Date: 20080703
  Serious: Yes (Other)
  Sender: FDA-Public Use
  Company Number: D0055988A

PATIENT
  Age: 67 Year
  Sex: Female

DRUGS (1)
  1. AMOCLAV [Suspect]
     Indication: PNEUMONIA
     Route: 048

REACTIONS (1)
  - RHEUMATOID ARTHRITIS [None]
